FAERS Safety Report 5670903-9 (Version None)
Quarter: 2008Q1

REPORT INFORMATION
  Report Type: 
  Country: None (occurrence: None)
  Receive Date: 20080318
  Receipt Date: 20080311
  Transmission Date: 20080703
  Serious: Yes (Death)
  Sender: FDA-Public Use
  Company Number: A0715914A

PATIENT
  Sex: Male

DRUGS (1)
  1. AVANDIA [Suspect]
     Dates: start: 20010101, end: 20020313

REACTIONS (1)
  - MYOCARDIAL INFARCTION [None]
